FAERS Safety Report 9248938 (Version 3)
Quarter: 2013Q2

REPORT INFORMATION
  Report Type: Spontaneous
  Country: JP (occurrence: JP)
  Receive Date: 20130423
  Receipt Date: 20130517
  Transmission Date: 20140414
  Serious: No
  Sender: FDA-Public Use
  Company Number: JP-PFIZER INC-2013125534

PATIENT
  Age: 70 Year
  Sex: Male

DRUGS (1)
  1. SELARA [Suspect]
     Indication: HYPERTENSION
     Dosage: 50 MG, DAILY
     Route: 048
     Dates: start: 20130322, end: 20130412

REACTIONS (1)
  - Anaemia [Recovered/Resolved]
